FAERS Safety Report 7141983-9 (Version None)
Quarter: 2010Q4

REPORT INFORMATION
  Report Type: 
  Country: None (occurrence: None)
  Receive Date: 20101202
  Receipt Date: 20101202
  Transmission Date: 20110411
  Serious: Yes (Other)
  Sender: FDA-Public Use
  Company Number: None

PATIENT
  Age: 41 Year
  Sex: Male
  Weight: 61 kg

DRUGS (1)
  1. EPOGEN [Suspect]
     Indication: HAEMATOCRIT ABNORMAL
     Dosage: 8,000 UNITS 2 TIMES A WEEK HEMODIALYSIS
     Route: 010

REACTIONS (2)
  - POOR QUALITY DRUG ADMINISTERED [None]
  - PRODUCT QUALITY ISSUE [None]
